FAERS Safety Report 16210109 (Version 1)
Quarter: 2019Q2

REPORT INFORMATION
  Report Type: Other
  Country: CN (occurrence: CN)
  Receive Date: 20190417
  Receipt Date: 20190417
  Transmission Date: 20190711
  Serious: Yes (Life-Threatening)
  Sender: FDA-Public Use
  Company Number: CN-JIANGSU HENGRUI MEDICINE CO., LTD.-2065997

PATIENT
  Age: 58 Year
  Sex: Male
  Weight: 63 kg

DRUGS (1)
  1. OXALIPLATIN INJECTION USP, 5 MG/ML, PACKAGED IN 50 MG/10 ML AND 100 MG [Suspect]
     Active Substance: OXALIPLATIN
     Indication: CHEMOTHERAPY
     Route: 041
     Dates: start: 20190403, end: 20190403

REACTIONS (3)
  - Blood pressure decreased [Recovered/Resolved]
  - Drooling [Recovered/Resolved]
  - Cyanosis [Recovered/Resolved]

NARRATIVE: CASE EVENT DATE: 20190403
